FAERS Safety Report 7902680-2 (Version None)
Quarter: 2011Q4

REPORT INFORMATION
  Report Type: 
  Country: None (occurrence: None)
  Receive Date: 20111108
  Receipt Date: 20111103
  Transmission Date: 20120403
  Serious: Yes (Death, Life-Threatening, Hospitalization, Disabling, Other)
  Sender: FDA-Public Use
  Company Number: US-MERCK-1111USA00515

PATIENT
  Age: 70 Year
  Sex: Female

DRUGS (1)
  1. PRIMAXIN [Suspect]
     Indication: URINARY TRACT INFECTION
     Route: 042
     Dates: start: 20111001, end: 20111001

REACTIONS (2)
  - CONVULSION [None]
  - RENAL FAILURE [None]
